FAERS Safety Report 6338717-4 (Version None)
Quarter: 2009Q3

REPORT INFORMATION
  Report Type: 
  Country: None (occurrence: None)
  Receive Date: 20090903
  Receipt Date: 20090213
  Transmission Date: 20100115
  Serious: No
  Sender: FDA-Public Use
  Company Number: A0768687A

PATIENT

DRUGS (1)
  1. RELENZA [Suspect]
     Route: 055

REACTIONS (1)
  - DRUG DISPENSING ERROR [None]
